FAERS Safety Report 4945912-5 (Version None)
Quarter: 2006Q1

REPORT INFORMATION
  Report Type: 
  Country: None (occurrence: None)
  Receive Date: 20060202
  Receipt Date: 20050425
  Transmission Date: 20060701
  Serious: Yes (Other)
  Sender: FDA-Public Use
  Company Number: 2005045251

PATIENT
  Sex: Female

DRUGS (4)
  1. AROMASIN [Suspect]
     Indication: BREAST CANCER
     Dosage: 25 MG (25 MG)
     Dates: start: 20040501, end: 20050201
  2. FLUOXETINE HCL [Concomitant]
  3. PANTOPRAZOLE SODIUM [Concomitant]
  4. CITALOPRAM HYDROBROMIDE [Concomitant]

REACTIONS (5)
  - ANXIETY [None]
  - CONSTIPATION [None]
  - CRYING [None]
  - DEPRESSION [None]
  - MALAISE [None]
